FAERS Safety Report 16109751 (Version 1)
Quarter: 2019Q1

REPORT INFORMATION
  Report Type: Report from Study
  Country: GR (occurrence: GR)
  Receive Date: 20190325
  Receipt Date: 20190325
  Transmission Date: 20190418
  Serious: Yes (Other)
  Sender: FDA-Public Use
  Company Number: GR-SA-2019SA073531

PATIENT
  Age: 71 Year
  Sex: Male

DRUGS (2)
  1. INSULIN GLULISINE [Suspect]
     Active Substance: INSULIN GLULISINE
     Indication: DIABETES MELLITUS
     Dosage: 6 U, AT NOON, BEFORE LUNCH, QD
     Route: 058
  2. INSULIN GLARGINE [Suspect]
     Active Substance: INSULIN GLARGINE
     Indication: DIABETES MELLITUS
     Dosage: 14U/16/18U, QD IN THE EVENING DEPENDING ON GLUCOSE VALUES
     Route: 058

REACTIONS (5)
  - Injection site swelling [Unknown]
  - Blood glucose increased [Unknown]
  - Injection site erythema [Unknown]
  - Renal failure [Unknown]
  - Injection site pruritus [Unknown]
